FAERS Safety Report 15986993 (Version 2)
Quarter: 2019Q3

REPORT INFORMATION
  Report Type: Report from Study
  Country: NL (occurrence: NL)
  Receive Date: 20190220
  Receipt Date: 20190711
  Transmission Date: 20191004
  Serious: Yes (Hospitalization)
  Sender: FDA-Public Use
  Company Number: NL-TEVA-2019-NL-1014412

PATIENT
  Age: 50 Year

DRUGS (1)
  1. CAPECITABINE. [Suspect]
     Active Substance: CAPECITABINE
     Indication: TRIPLE NEGATIVE BREAST CANCER
     Dosage: SEVERE TOXICITIES DEVELOPED AFTER CYCLE 1
     Route: 065

REACTIONS (8)
  - Oral discomfort [Unknown]
  - Febrile neutropenia [Unknown]
  - Swelling face [Unknown]
  - Nausea [Unknown]
  - Diarrhoea [Unknown]
  - Leukopenia [Unknown]
  - Erythema [Unknown]
  - Hypersensitivity [Unknown]
